FAERS Safety Report 13179906 (Version 1)
Quarter: 2017Q1

REPORT INFORMATION
  Report Type: Spontaneous
  Country: US (occurrence: US)
  Receive Date: 20170202
  Receipt Date: 20170202
  Transmission Date: 20170428
  Serious: No
  Sender: FDA-Public Use
  Company Number: US-TARO-2016TAR01014

PATIENT
  Age: 68 Year
  Sex: Female

DRUGS (8)
  1. FLUOXETINE [Concomitant]
     Active Substance: FLUOXETINE HYDROCHLORIDE
  2. CYMBALTA [Concomitant]
     Active Substance: DULOXETINE HYDROCHLORIDE
  3. NEXIUM [Concomitant]
     Active Substance: ESOMEPRAZOLE MAGNESIUM
     Dosage: 40 MG, 1X/DAY
  4. CELECOXIB. [Concomitant]
     Active Substance: CELECOXIB
     Dosage: 100 MG, 2X/DAY
  5. MULTI VITAMIN [Concomitant]
     Active Substance: VITAMINS
  6. BETAMETHASONE VALERATE CREAM USP 0.1% [Suspect]
     Active Substance: BETAMETHASONE VALERATE
     Indication: RASH
     Dosage: UNK UNK, 1X/DAY
     Route: 061
     Dates: start: 2009
  7. XARELTO [Concomitant]
     Active Substance: RIVAROXABAN
  8. CLONIDINE. [Concomitant]
     Active Substance: CLONIDINE
     Dosage: UNK, 2X/DAY

REACTIONS (2)
  - Haemorrhage [Recovered/Resolved]
  - Product package associated injury [Recovered/Resolved]

NARRATIVE: CASE EVENT DATE: 201611
